FAERS Safety Report 25702545 (Version 2)
Quarter: 2025Q3

REPORT INFORMATION
  Report Type: Spontaneous
  Country: EU (occurrence: EU)
  Receive Date: 20250819
  Receipt Date: 20250930
  Transmission Date: 20251021
  Serious: Yes (Other)
  Sender: Harrow Health
  Company Number: 007518

PATIENT
  Age: 52 Year
  Sex: Female

DRUGS (6)
  1. VERKAZIA [Suspect]
     Active Substance: CYCLOSPORINE
     Indication: Product used for unknown indication
     Route: 047
     Dates: start: 20241031
  2. VERKAZIA [Suspect]
     Active Substance: CYCLOSPORINE
     Route: 047
  3. INSULIN NOS [Concomitant]
     Active Substance: INSULIN NOS
  4. LOSARTAN [Concomitant]
     Active Substance: LOSARTAN
  5. DXM eyedrops [Concomitant]
  6. Timabak [Concomitant]

REACTIONS (15)
  - Suffocation feeling [Recovering/Resolving]
  - Swelling [Not Recovered/Not Resolved]
  - Pharyngeal swelling [Recovering/Resolving]
  - Swelling of eyelid [Recovering/Resolving]
  - Vision blurred [Recovering/Resolving]
  - Eye pruritus [Recovered/Resolved]
  - Weight increased [Not Recovered/Not Resolved]
  - Mobility decreased [Recovering/Resolving]
  - Off label use [Unknown]
  - Prescribed overdose [Unknown]
  - Intentional product misuse [Unknown]
  - Off label use [Unknown]
  - Multiple use of single-use product [Unknown]
  - Intentional product use issue [Unknown]
  - Anxiety [Not Recovered/Not Resolved]
